FAERS Safety Report 5761029-4 (Version None)
Quarter: 2008Q2

REPORT INFORMATION
  Report Type: 
  Country: None (occurrence: None)
  Receive Date: 20080606
  Receipt Date: 20080118
  Transmission Date: 20081010
  Serious: No
  Sender: FDA-Public Use
  Company Number: US-ASTRAZENECA-2008UW01416

PATIENT
  Age: 53 Year
  Sex: Male
  Weight: 81.6 kg

DRUGS (3)
  1. PRILOSEC [Suspect]
     Indication: GASTROOESOPHAGEAL REFLUX DISEASE
     Route: 048
  2. PRILOSEC [Suspect]
     Route: 048
     Dates: start: 20070101
  3. MANY OTHER MEDICATIONS [Concomitant]

REACTIONS (1)
  - VITAMIN B12 DEFICIENCY [None]
